FAERS Safety Report 11319321 (Version 2)
Quarter: 2015Q3

REPORT INFORMATION
  Report Type: Spontaneous
  Country: US (occurrence: US)
  Receive Date: 20150729
  Receipt Date: 20150910
  Transmission Date: 20151125
  Serious: No
  Sender: FDA-Public Use
  Company Number: US-ACTELION PHARMACEUTICALS US, INC.-A-US2015-119506

PATIENT
  Age: 47 Year
  Sex: Female

DRUGS (3)
  1. VELETRI [Suspect]
     Active Substance: EPOPROSTENOL
     Indication: PULMONARY ARTERIAL HYPERTENSION
     Dosage: 25 NG/KG, PER MIN
     Route: 042
     Dates: start: 20120720
  2. OPSUMIT [Suspect]
     Active Substance: MACITENTAN
     Indication: PULMONARY ARTERIAL HYPERTENSION
     Dosage: 10 MG, QD
     Route: 048
  3. RIOCIGUAT [Concomitant]
     Active Substance: RIOCIGUAT

REACTIONS (12)
  - Hyperhidrosis [Unknown]
  - Paraesthesia [Unknown]
  - Device alarm issue [Unknown]
  - Catheter site erythema [Unknown]
  - Catheter site pain [Recovered/Resolved]
  - Catheter placement [Unknown]
  - Decreased appetite [Unknown]
  - Muscle atrophy [Unknown]
  - Catheter site pruritus [Unknown]
  - Weight decreased [Unknown]
  - Catheter site discolouration [Unknown]
  - Catheter site related reaction [Unknown]

NARRATIVE: CASE EVENT DATE: 20150609
